FAERS Safety Report 5075569-7 (Version None)
Quarter: 2006Q3

REPORT INFORMATION
  Report Type: 
  Country: None (occurrence: None)
  Receive Date: 20060809
  Receipt Date: 20050609
  Transmission Date: 20061208
  Serious: Yes (Hospitalization, Disabling)
  Sender: FDA-Public Use
  Company Number: US-ROCHE-407485

PATIENT
  Age: 21 Year
  Sex: Male
  Weight: 65.8 kg

DRUGS (8)
  1. ACCUTANE [Suspect]
     Indication: ACNE
     Route: 048
     Dates: start: 20021215, end: 20030315
  2. ACCUTANE [Suspect]
     Route: 048
     Dates: start: 20030315, end: 20030615
  3. SULFASALAZINE [Concomitant]
     Indication: COLITIS
  4. CELEBREX [Concomitant]
     Indication: ARTHRITIS
  5. PRILOSEC [Concomitant]
  6. ADVIL [Concomitant]
  7. IBUPROFEN [Concomitant]
  8. MOTRIN [Concomitant]

REACTIONS (49)
  - ADJUSTMENT DISORDER [None]
  - ADJUSTMENT DISORDER WITH DEPRESSED MOOD [None]
  - AFFECT LABILITY [None]
  - AGGRESSION [None]
  - AGITATION [None]
  - ANGER [None]
  - ANXIETY [None]
  - ARTHRALGIA [None]
  - BACK INJURY [None]
  - BACK PAIN [None]
  - BRONCHITIS [None]
  - COLITIS ULCERATIVE [None]
  - CYST [None]
  - DELIRIUM [None]
  - DEPRESSED MOOD [None]
  - DEPRESSION [None]
  - DISTURBANCE IN ATTENTION [None]
  - DIZZINESS [None]
  - DRUG HYPERSENSITIVITY [None]
  - DRY SKIN [None]
  - EXCORIATION [None]
  - FACIAL BONES FRACTURE [None]
  - FALL [None]
  - FOOT FRACTURE [None]
  - GASTROENTERITIS [None]
  - GASTROOESOPHAGEAL REFLUX DISEASE [None]
  - HEADACHE [None]
  - HYPOAESTHESIA [None]
  - IMPULSE-CONTROL DISORDER [None]
  - IMPULSIVE BEHAVIOUR [None]
  - INJURY [None]
  - JUVENILE ARTHRITIS [None]
  - LIMB INJURY [None]
  - NECK INJURY [None]
  - PANIC ATTACK [None]
  - PARTNER STRESS [None]
  - PHARYNGOLARYNGEAL PAIN [None]
  - RESTLESSNESS [None]
  - SINUS HEADACHE [None]
  - SINUSITIS [None]
  - SKIN LACERATION [None]
  - SLEEP DISORDER [None]
  - SUICIDAL IDEATION [None]
  - SUICIDE ATTEMPT [None]
  - THINKING ABNORMAL [None]
  - UNDERWEIGHT [None]
  - VIRAL PHARYNGITIS [None]
  - VISUAL ACUITY REDUCED [None]
  - VISUAL DISTURBANCE [None]
